FAERS Safety Report 12614180 (Version 1)
Quarter: 2016Q3

REPORT INFORMATION
  Report Type: Spontaneous
  Country: US (occurrence: US)
  Receive Date: 20160802
  Receipt Date: 20160802
  Transmission Date: 20161109
  Serious: Yes (Hospitalization)
  Sender: FDA-Public Use
  Company Number: US-PFIZER INC-2016361486

PATIENT
  Age: 77 Year
  Sex: Female

DRUGS (12)
  1. NIASPAN [Suspect]
     Active Substance: NIACIN
     Indication: CARDIAC DISORDER
     Dosage: 500 MG, DAILY
     Route: 048
     Dates: start: 2010
  2. NORVASC [Suspect]
     Active Substance: AMLODIPINE BESYLATE
     Indication: CARDIAC DISORDER
     Dosage: 2.5 MG, 1X/DAY
     Route: 048
     Dates: start: 20120404
  3. ZETIA [Suspect]
     Active Substance: EZETIMIBE
     Indication: HYPERLIPIDAEMIA
  4. METHYLPREDNISOLONE. [Concomitant]
     Active Substance: METHYLPREDNISOLONE
     Dosage: 4 MG, UNK
     Route: 048
     Dates: start: 20151008
  5. LIPITOR [Suspect]
     Active Substance: ATORVASTATIN CALCIUM
     Indication: CARDIAC DISORDER
     Dosage: 20 MG, DAILY
     Route: 048
     Dates: start: 1999
  6. LEVOTHYROXINE SODIUM. [Suspect]
     Active Substance: LEVOTHYROXINE SODIUM
     Indication: THYROID DISORDER
     Dosage: 25 UG, DAILY
     Route: 048
     Dates: start: 20100503
  7. ZETIA [Suspect]
     Active Substance: EZETIMIBE
     Indication: CARDIAC DISORDER
     Dosage: 10 MG, 1X/DAY
     Dates: start: 1999
  8. ASPIRIN. [Concomitant]
     Active Substance: ASPIRIN
     Dosage: 325 MG, DAILY
     Route: 048
     Dates: start: 20140728
  9. LIPITOR [Suspect]
     Active Substance: ATORVASTATIN CALCIUM
     Indication: HYPERLIPIDAEMIA
  10. NITROGLYCERINE [Concomitant]
     Active Substance: NITROGLYCERIN
     Indication: CHEST PAIN
     Dosage: 1 DF, AS NEEDED (0.4 MG/SPRAY,1 SPRAY)
     Route: 060
     Dates: start: 20140117
  11. FOLIC ACID. [Concomitant]
     Active Substance: FOLIC ACID
     Dosage: 6 MG, DAILY (1 MILLIGRAM TABLET, 6 IN 1 DAY)
     Route: 048
     Dates: start: 20100428
  12. NITROGLYCERINE [Concomitant]
     Active Substance: NITROGLYCERIN
     Indication: CORONARY ARTERY DISEASE

REACTIONS (1)
  - Hypoacusis [Unknown]

NARRATIVE: CASE EVENT DATE: 2011
